FAERS Safety Report 4605552-4 (Version None)
Quarter: 2005Q1

REPORT INFORMATION
  Report Type: 
  Country: None (occurrence: None)
  Receive Date: 20050310
  Receipt Date: 20040924
  Transmission Date: 20050727
  Serious: No
  Sender: FDA-Public Use
  Company Number: US-BRISTOL-MYERS SQUIBB COMPANY-12714507

PATIENT
  Age: 23 Year
  Sex: Female

DRUGS (1)
  1. MONISTAT [Suspect]
     Indication: VAGINAL MYCOSIS
     Route: 067
     Dates: start: 20040921, end: 20040921

REACTIONS (3)
  - GENITAL PRURITUS FEMALE [None]
  - INSOMNIA [None]
  - VAGINAL DISCHARGE [None]
